FAERS Safety Report 9643387 (Version 1)
Quarter: 2013Q4

REPORT INFORMATION
  Report Type: Spontaneous
  Country: US (occurrence: US)
  Receive Date: 20131024
  Receipt Date: 20131024
  Transmission Date: 20140711
  Serious: No
  Sender: FDA-Public Use
  Company Number: US-009507513-1309USA012560

PATIENT
  Age: 67 Year
  Sex: Female
  Weight: 56.69 kg

DRUGS (5)
  1. VICTRELIS [Suspect]
     Dosage: TAKE 4 CAPSULES THREE TIMES A DAY
     Route: 048
  2. PEGASYS [Suspect]
     Dosage: STRENGTH: 180 MCG/M
  3. RIBAPAK [Suspect]
     Dosage: 800/DAY
  4. PRINIVIL [Concomitant]
     Dosage: UNKNOWN
     Route: 048
  5. PANTOPRAZOLE [Concomitant]
     Dosage: UNKNOWN
     Route: 048

REACTIONS (2)
  - Alopecia [Unknown]
  - Dysgeusia [Unknown]
